FAERS Safety Report 8430555-1 (Version None)
Quarter: 2012Q2

REPORT INFORMATION
  Report Type: 
  Country: None (occurrence: None)
  Receive Date: 20120612
  Receipt Date: 20120605
  Transmission Date: 20120825
  Serious: Yes (Other)
  Sender: FDA-Public Use
  Company Number: JP-GLAXOSMITHKLINE-B0796985A

PATIENT
  Sex: Male

DRUGS (5)
  1. LITHIUM CARBONATE [Concomitant]
     Indication: BIPOLAR II DISORDER
     Dosage: 800MG PER DAY
     Route: 048
     Dates: start: 20120228
  2. LAMICTAL [Suspect]
     Indication: BIPOLAR II DISORDER
     Dosage: 25MG PER DAY
     Route: 048
     Dates: start: 20120411, end: 20120416
  3. ZOLOFT [Concomitant]
     Indication: DEPRESSION
     Route: 048
     Dates: start: 20120328, end: 20120416
  4. SILECE [Concomitant]
     Indication: BIPOLAR II DISORDER
     Dosage: 1MG PER DAY
     Route: 048
     Dates: start: 20120228
  5. DEPAKENE [Concomitant]
     Indication: BIPOLAR II DISORDER
     Dosage: 200MG PER DAY
     Route: 048
     Dates: start: 20120228, end: 20120410

REACTIONS (6)
  - CONVULSION [None]
  - EPILEPSY [None]
  - LOSS OF CONSCIOUSNESS [None]
  - MYALGIA [None]
  - VOMITING [None]
  - HYPOAESTHESIA ORAL [None]
